FAERS Safety Report 4581395-5 (Version None)
Quarter: 2005Q1

REPORT INFORMATION
  Report Type: 
  Country: None (occurrence: None)
  Receive Date: 20050214
  Receipt Date: 20041013
  Transmission Date: 20050727
  Serious: No
  Sender: FDA-Public Use
  Company Number: US-GLAXOSMITHKLINE-A0529694A

PATIENT
  Sex: Female

DRUGS (3)
  1. LAMICTAL [Suspect]
     Indication: ANXIETY
     Dosage: 50MG PER DAY
     Route: 048
     Dates: end: 20041012
  2. PROZAC [Concomitant]
  3. XANAX [Concomitant]

REACTIONS (4)
  - DIARRHOEA [None]
  - INSOMNIA [None]
  - NAUSEA [None]
  - PARAESTHESIA [None]
